FAERS Safety Report 6315279-9 (Version None)
Quarter: 2009Q3

REPORT INFORMATION
  Report Type: 
  Country: None (occurrence: None)
  Receive Date: 20090819
  Receipt Date: 20090818
  Transmission Date: 20100115
  Serious: Yes (Other)
  Sender: FDA-Public Use
  Company Number: US-PFIZER INC-2009233125

PATIENT
  Sex: Female
  Weight: 76.657 kg

DRUGS (4)
  1. ARTHROTEC [Suspect]
     Dates: start: 20080301, end: 20090201
  2. SYNTHROID [Concomitant]
     Dosage: UNK
  3. LIPITOR [Concomitant]
     Dosage: UNK
  4. TOPROL-XL [Concomitant]
     Dosage: UNK

REACTIONS (3)
  - KNEE ARTHROPLASTY [None]
  - MUSCULOSKELETAL STIFFNESS [None]
  - PAIN [None]
